FAERS Safety Report 11341540 (Version 1)
Quarter: 2015Q3

REPORT INFORMATION
  Report Type: Spontaneous
  Country: CN (occurrence: CN)
  Receive Date: 20150805
  Receipt Date: 20150805
  Transmission Date: 20151125
  Serious: Yes (Other)
  Sender: FDA-Public Use
  Company Number: CN-BAYER-2015-392834

PATIENT
  Sex: Female

DRUGS (2)
  1. BAYASPIRIN [Suspect]
     Active Substance: ASPIRIN
     Dosage: 100 MG, FOR MANY YEARS
  2. BAYASPIRIN [Suspect]
     Active Substance: ASPIRIN
     Dosage: 50 UNK, UNK

REACTIONS (1)
  - Rectal ulcer [None]

NARRATIVE: CASE EVENT DATE: 2015
